FAERS Safety Report 7718846-0 (Version None)
Quarter: 2011Q3

REPORT INFORMATION
  Report Type: 
  Country: None (occurrence: None)
  Receive Date: 20110830
  Receipt Date: 20110819
  Transmission Date: 20111222
  Serious: Yes (Life-Threatening, Hospitalization, Disabling)
  Sender: FDA-Public Use
  Company Number: US-BAYER-2011-025732

PATIENT
  Age: 22 Year
  Sex: Female
  Weight: 61.224 kg

DRUGS (4)
  1. DROSPIRENONE AND ETHINYL ESTRADIOL [Suspect]
     Indication: PREMENSTRUAL SYNDROME
  2. HYDROCODONE BITARTRATE AND ACETAMINOPHEN [Concomitant]
     Dosage: UNK
     Dates: start: 20090129
  3. LEVAQUIN [Concomitant]
     Dosage: 750 MG, UNK
     Dates: start: 20090129
  4. DROSPIRENONE AND ETHINYL ESTRADIOL [Suspect]
     Indication: ACNE
     Dosage: UNK
     Dates: start: 20090201, end: 20090301

REACTIONS (11)
  - ANXIETY [None]
  - VISION BLURRED [None]
  - AMNESIA [None]
  - FEAR [None]
  - VIITH NERVE PARALYSIS [None]
  - CEREBROVASCULAR ACCIDENT [None]
  - HEMIPLEGIA [None]
  - INJURY [None]
  - COGNITIVE DISORDER [None]
  - PAIN [None]
  - SPEECH DISORDER [None]
